FAERS Safety Report 16090931 (Version 2)
Quarter: 2019Q1

REPORT INFORMATION
  Report Type: Spontaneous
  Country: BR (occurrence: BR)
  Receive Date: 20190319
  Receipt Date: 20190321
  Transmission Date: 20190418
  Serious: Yes (Life-Threatening, Other)
  Sender: FDA-Public Use
  Company Number: PHHY2019BR060645

PATIENT
  Sex: Female

DRUGS (4)
  1. FORASEQ [Suspect]
     Active Substance: BUDESONIDE\FORMOTEROL FUMARATE
     Dosage: 3 DF, UNK
     Route: 055
  2. AEROLIN [Concomitant]
     Active Substance: ALBUTEROL
     Indication: PRODUCT USED FOR UNKNOWN INDICATION
     Dosage: UNK UNK, PRN
     Route: 065
  3. FORASEQ [Suspect]
     Active Substance: BUDESONIDE\FORMOTEROL FUMARATE
     Indication: ASTHMA
     Dosage: UNK UNK, BID
     Route: 055
  4. FOSTAIR [Concomitant]
     Active Substance: BECLOMETHASONE\FORMOTEROL
     Indication: ASTHMA
     Dosage: UNK
     Route: 065

REACTIONS (8)
  - Dementia Alzheimer^s type [Unknown]
  - Pyrexia [Recovered/Resolved]
  - Eating disorder [Recovered/Resolved]
  - Feeling abnormal [Unknown]
  - Wrong technique in product usage process [Unknown]
  - Aphasia [Not Recovered/Not Resolved]
  - Malaise [Recovered/Resolved]
  - Dysphagia [Not Recovered/Not Resolved]
